FAERS Safety Report 7959032-9 (Version None)
Quarter: 2011Q4

REPORT INFORMATION
  Report Type: 
  Country: None (occurrence: None)
  Receive Date: 20111206
  Receipt Date: 20111129
  Transmission Date: 20120403
  Serious: Yes (Other)
  Sender: FDA-Public Use
  Company Number: US-SANOFI-AVENTIS-2011SA008661

PATIENT
  Age: 61 Year
  Sex: Female

DRUGS (5)
  1. ATENOLOL [Concomitant]
     Indication: ATRIAL FIBRILLATION
  2. MULTAQ [Suspect]
     Indication: ATRIAL FIBRILLATION
     Route: 048
     Dates: start: 20100904, end: 20110314
  3. NORPACE [Concomitant]
     Indication: ATRIAL FIBRILLATION
  4. CARDIZEM [Concomitant]
     Indication: ATRIAL FIBRILLATION
  5. ASPIRIN [Concomitant]

REACTIONS (2)
  - ARRHYTHMIA [None]
  - OPTIC NEURITIS [None]
